FAERS Safety Report 6508796-X (Version None)
Quarter: 2009Q4

REPORT INFORMATION
  Report Type: 
  Country: None (occurrence: None)
  Receive Date: 20091221
  Receipt Date: 20090811
  Transmission Date: 20100525
  Serious: No
  Sender: FDA-Public Use
  Company Number: US-ASTRAZENECA-2009SE08063

PATIENT
  Age: 45 Year
  Sex: Male
  Weight: 72.6 kg

DRUGS (1)
  1. CRESTOR [Suspect]
     Indication: HYPERCHOLESTEROLAEMIA
     Dosage: 5 MG  ABOUT EVERY OTHER DAY
     Route: 048

REACTIONS (4)
  - ACNE [None]
  - DRY MOUTH [None]
  - MOUTH ULCERATION [None]
  - OEDEMA [None]
